FAERS Safety Report 4356907-7 (Version None)
Quarter: 2004Q2

REPORT INFORMATION
  Report Type: 
  Country: None (occurrence: None)
  Receive Date: 20040507
  Receipt Date: 20040416
  Transmission Date: 20050107
  Serious: Yes (Hospitalization)
  Sender: FDA-Public Use
  Company Number: EWC030334115

PATIENT
  Age: 71 Year
  Sex: Female

DRUGS (3)
  1. PERGOLIDE MESYLATE [Suspect]
     Indication: PARKINSON'S DISEASE
     Dosage: 3 MG/DAY
     Dates: start: 19990320, end: 20030204
  2. LEVODOPA [Concomitant]
  3. PAROXETINE HCL [Concomitant]
     Indication: DEPRESSION

REACTIONS (3)
  - DEEP VEIN THROMBOSIS [None]
  - GASTRIC CANCER [None]
  - RETROPERITONEAL FIBROSIS [None]
